FAERS Safety Report 23830144 (Version 2)
Quarter: 2024Q2

REPORT INFORMATION
  Report Type: Spontaneous
  Country: US (occurrence: US)
  Receive Date: 20240508
  Receipt Date: 20240520
  Transmission Date: 20240716
  Serious: Yes (Other)
  Sender: FDA-Public Use
  Company Number: US-MYLANLABS-2024M1039918

PATIENT

DRUGS (1)
  1. BREYNA [Suspect]
     Active Substance: BUDESONIDE\FORMOTEROL FUMARATE
     Indication: Asthma
     Dosage: UNK BID (2 PUFFS TWICE A DAY)
     Route: 065

REACTIONS (7)
  - Choking [Unknown]
  - Wheezing [Unknown]
  - Oropharyngeal discomfort [Unknown]
  - Throat irritation [Unknown]
  - Cough [Unknown]
  - Device issue [Unknown]
  - Product substitution issue [Unknown]
